FAERS Safety Report 12348328 (Version 7)
Quarter: 2022Q4

REPORT INFORMATION
  Report Type: Report from Study
  Country: FR (occurrence: FR)
  Receive Date: 20160509
  Receipt Date: 20221118
  Transmission Date: 20230112
  Serious: Yes (Life-Threatening, Hospitalization, Other)
  Sender: FDA-Public Use
  Company Number: FR-JNJFOC-20151101884

PATIENT
  Age: 31 Year
  Sex: Male
  Weight: 52 kg

DRUGS (39)
  1. SIRTURO [Suspect]
     Active Substance: BEDAQUILINE FUMARATE
     Indication: Tuberculosis
     Dosage: 200 MG, 3 TIMES BY WEEK
     Route: 048
     Dates: start: 20150828, end: 20160420
  2. SIRTURO [Suspect]
     Active Substance: BEDAQUILINE FUMARATE
     Indication: Pulmonary tuberculosis
  3. SIRTURO [Suspect]
     Active Substance: BEDAQUILINE FUMARATE
     Indication: Tuberculosis
  4. DELAMANID [Interacting]
     Active Substance: DELAMANID
     Indication: Tuberculosis
     Dosage: 200 MG, QD, DOSAGE FORM: UNSPECIFIED, 4 TABLETS
     Route: 048
     Dates: start: 20151002, end: 20160420
  5. DELAMANID [Interacting]
     Active Substance: DELAMANID
     Dosage: 4 TABLETS
     Route: 048
  6. DELAMANID [Interacting]
     Active Substance: DELAMANID
     Route: 048
  7. DELAMANID [Interacting]
     Active Substance: DELAMANID
     Route: 048
  8. DELAMANID [Interacting]
     Active Substance: DELAMANID
     Route: 048
  9. AMIKACIN [Suspect]
     Active Substance: AMIKACIN
     Indication: Tuberculosis
     Route: 065
     Dates: start: 20150828, end: 20150828
  10. AMIKACIN [Suspect]
     Active Substance: AMIKACIN
     Dosage: DOSAGE FORM: UNSPECIFIED
     Route: 065
  11. AMIKACIN [Suspect]
     Active Substance: AMIKACIN
     Dosage: DOSAGE FORM: UNSPECIFIED, AMIKACIN 1/2
     Route: 065
     Dates: start: 20160108
  12. CILASTATIN SODIUM\IMIPENEM [Suspect]
     Active Substance: CILASTATIN SODIUM\IMIPENEM
     Indication: Pulmonary tuberculosis
     Dosage: DOSAGE FORM: UNSPECIFIED
     Route: 065
     Dates: start: 20150922
  13. CYCLOSERINE [Suspect]
     Active Substance: CYCLOSERINE
     Indication: Tuberculosis
     Route: 048
     Dates: start: 20150828
  14. AMINOSALICYLIC ACID [Suspect]
     Active Substance: AMINOSALICYLIC ACID
     Indication: Tuberculosis
     Route: 048
     Dates: start: 20150828
  15. LAMPRENE [Interacting]
     Active Substance: CLOFAZIMINE
     Indication: Tuberculosis
     Dosage: 100 MG, QD
     Route: 048
     Dates: start: 20150912, end: 20160420
  16. IMIPENEM [Suspect]
     Active Substance: IMIPENEM
     Indication: Tuberculosis
     Dosage: DOSAGE FORM: UNSPECIFIED
     Route: 065
  17. AMOXICILLIN\CLAVULANIC ACID [Suspect]
     Active Substance: AMOXICILLIN\CLAVULANIC ACID
     Indication: Tuberculosis
     Dosage: DOSAGE FORM: UNSPECIFIED
     Route: 065
  18. PARA-AMINOSALICYLIC ACID [Suspect]
     Active Substance: AMINOSALICYLIC ACID
     Indication: Tuberculosis
     Dosage: DOSAGE FORM: UNSPECIFIED, (50 MG TAB)
     Route: 065
     Dates: start: 20150828
  19. MIANSERIN HYDROCHLORIDE [Interacting]
     Active Substance: MIANSERIN HYDROCHLORIDE
     Indication: Anxiety
     Dosage: 10 MG, QD
     Route: 048
     Dates: start: 20160408
  20. MIANSERIN HYDROCHLORIDE [Interacting]
     Active Substance: MIANSERIN HYDROCHLORIDE
     Indication: Impulsive behaviour
     Route: 065
  21. MOXIFLOXACIN HYDROCHLORIDE [Suspect]
     Active Substance: MOXIFLOXACIN HYDROCHLORIDE
     Indication: Pulmonary tuberculosis
     Dosage: DOSAGE FORM: UNSPECIFIED
     Route: 065
     Dates: end: 201509
  22. LINEZOLID [Suspect]
     Active Substance: LINEZOLID
     Indication: Pulmonary tuberculosis
     Dosage: DOSAGE FORM: UNSPECIFIED
     Route: 065
     Dates: end: 201509
  23. DELAMANID [Suspect]
     Active Substance: DELAMANID
     Indication: Pulmonary tuberculosis
     Dosage: DOSAGE FORM: UNSPECIFIED 700
     Route: 065
  24. CLOFAZIMINE [Suspect]
     Active Substance: CLOFAZIMINE
     Indication: Pulmonary tuberculosis
     Dosage: DOSAGE FORM: UNSPECIFIED
     Route: 065
  25. MAGNESIUM [Concomitant]
     Active Substance: MAGNESIUM
     Indication: Product used for unknown indication
     Dosage: DOSAGE FORM: UNSPECIFIED
     Route: 065
  26. PHLOROGLUCINOL [Concomitant]
     Active Substance: PHLOROGLUCINOL
     Indication: Product used for unknown indication
     Dosage: DOSAGE FORM: UNSPECIFIED, IF NEEDED
     Route: 065
  27. DAFALGAN [Concomitant]
     Active Substance: ACETAMINOPHEN
     Indication: Product used for unknown indication
     Dosage: DOSAGE FORM: UNSPECIFIED, ONLY IF NEEDED
     Route: 065
  28. PRAZEPAM [Concomitant]
     Active Substance: PRAZEPAM
     Indication: Anxiety
     Dosage: DOSAGE FORM: UNSPECIFIED, 10 DROPS PER DAY, ONLY IF NEEDED
     Route: 048
  29. PRAZEPAM [Concomitant]
     Active Substance: PRAZEPAM
     Dosage: DOSAGE FORM: UNSPECIFIED, 10 DROPS PER DAY, ONLY IF NEEDED
     Route: 048
     Dates: start: 20151006
  30. NIACINAMIDE [Concomitant]
     Active Substance: NIACINAMIDE
     Indication: Product used for unknown indication
     Dosage: DOSAGE FORM: UNSPECIFIED
     Route: 065
  31. PRIMPERAN [Concomitant]
     Active Substance: METOCLOPRAMIDE HYDROCHLORIDE
     Indication: Product used for unknown indication
     Dosage: DOSAGE FORM: UNSPECIFIED, IF NEEDED
     Route: 065
  32. PRIMPERAN [Concomitant]
     Active Substance: METOCLOPRAMIDE HYDROCHLORIDE
     Route: 065
  33. PRIMPERAN [Concomitant]
     Active Substance: METOCLOPRAMIDE HYDROCHLORIDE
     Dosage: IF NEEDED
     Route: 065
  34. RACECADOTRIL [Concomitant]
     Active Substance: RACECADOTRIL
     Indication: Product used for unknown indication
     Dosage: ONLY IF NEEDED
     Route: 065
  35. POTASSIUM CHLORIDE [Concomitant]
     Active Substance: POTASSIUM CHLORIDE
     Indication: Product used for unknown indication
     Dosage: DOSAGE FORM: UNSPECIFIED
     Route: 065
  36. CHOLECALCIFEROL [Concomitant]
     Active Substance: CHOLECALCIFEROL
     Indication: Tuberculosis
     Dosage: DOSAGE FORM: UNSPECIFIED, 100 000 IU/14 DAYS
     Route: 065
  37. FERROUS SULFATE [Concomitant]
     Active Substance: FERROUS SULFATE
     Indication: Product used for unknown indication
     Dosage: DOSAGE FORM: UNSPECIFIED
     Route: 065
  38. ESOMEPRAZOLE [Concomitant]
     Active Substance: ESOMEPRAZOLE
     Indication: Product used for unknown indication
     Dosage: DOSAGE FORM: UNSPECIFIED
     Route: 065
  39. THIAMINE HYDROCHLORIDE [Concomitant]
     Active Substance: THIAMINE HYDROCHLORIDE
     Indication: Product used for unknown indication
     Route: 048

REACTIONS (18)
  - Electrocardiogram QT prolonged [Unknown]
  - Cardiac neoplasm unspecified [Recovered/Resolved]
  - Syncope [Unknown]
  - Drug interaction [Unknown]
  - Benign soft tissue neoplasm [Recovered/Resolved]
  - Fibroma [Recovered/Resolved]
  - Long QT syndrome [Unknown]
  - Intracardiac mass [Recovered/Resolved]
  - Benign soft tissue neoplasm [Recovered/Resolved]
  - Hyperthyroidism [Unknown]
  - Tuberculosis [Unknown]
  - Dizziness [Unknown]
  - Tinnitus [Not Recovered/Not Resolved]
  - Ageusia [Recovered/Resolved]
  - Aspartate aminotransferase increased [Unknown]
  - Alanine aminotransferase increased [Unknown]
  - Abdominal pain [Not Recovered/Not Resolved]
  - Off label use [Unknown]

NARRATIVE: CASE EVENT DATE: 20150901
